FAERS Safety Report 7994456-5 (Version None)
Quarter: 2011Q4

REPORT INFORMATION
  Report Type: 
  Country: None (occurrence: None)
  Receive Date: 20111220
  Receipt Date: 20111216
  Transmission Date: 20120403
  Serious: Yes (Life-Threatening, Hospitalization, Other)
  Sender: FDA-Public Use
  Company Number: CH-GENZYME-CLOF-1001738

PATIENT
  Sex: Male
  Weight: 73 kg

DRUGS (19)
  1. BACTRIUM DS [Concomitant]
     Indication: PNEUMONIA
     Dosage: 160/800 MG TIW
     Route: 048
     Dates: start: 20110801, end: 20111022
  2. MIRTAZAPINE [Concomitant]
     Indication: AFFECTIVE DISORDER
     Dosage: 30 MG, UNK
     Route: 048
     Dates: start: 20110801, end: 20111002
  3. POTASSIUM [Concomitant]
     Indication: SUPPLEMENTATION THERAPY
     Dosage: 30 MMOL, UNK
     Route: 048
     Dates: start: 20110701
  4. NAVOBAN [Concomitant]
     Indication: PROPHYLAXIS OF NAUSEA AND VOMITING
     Dosage: 5 MG, UNK
     Route: 042
     Dates: start: 20110728, end: 20110804
  5. ALLOPURINOL [Concomitant]
     Indication: HYPERURICAEMIA
     Dosage: 300 MG, UNK
     Route: 048
     Dates: start: 20110729, end: 20110803
  6. NALOXON [Concomitant]
     Indication: WOUND COMPLICATION
     Dosage: OXYCODON/NALOXON 40/20 MG
     Route: 048
     Dates: start: 20110801
  7. IDARUBICIN HCL [Suspect]
     Indication: ACUTE MYELOID LEUKAEMIA
     Dosage: 23.6 MG QDX3, CYCLE 1
     Route: 042
     Dates: start: 20110729, end: 20110731
  8. CYTARABINE [Suspect]
     Indication: ACUTE MYELOID LEUKAEMIA
     Dosage: 394 MG QDX7, CYCLE 1
     Route: 042
     Dates: start: 20110728, end: 20110803
  9. SOLU-MEDROL [Concomitant]
     Indication: PROPHYLAXIS OF NAUSEA AND VOMITING
     Dosage: 125 MG, UNK
     Route: 042
     Dates: start: 20110728, end: 20110804
  10. FASTURTEC [Concomitant]
     Indication: HYPERURICAEMIA
     Dosage: 7.5 MG, UNK
     Route: 065
     Dates: start: 20110728, end: 20110728
  11. OXYCODONE HCL [Concomitant]
     Indication: WOUND COMPLICATION
     Dosage: OXYCODON/NALOXON 40/20 MG
     Route: 048
     Dates: start: 20110801
  12. POSACONAZOLE [Concomitant]
     Indication: ANTIFUNGAL PROPHYLAXIS
     Dosage: 20 ML, UNK
     Route: 048
     Dates: start: 20110801, end: 20111004
  13. EVOLTRA [Suspect]
     Indication: ACUTE MYELOID LEUKAEMIA
     Dosage: 20 MG QDX5, CYCLE 1
     Route: 042
     Dates: start: 20110729, end: 20110803
  14. EVOLTRA [Suspect]
     Dosage: 20 MG, CYCLE 2
     Route: 042
  15. CYTARABINE [Suspect]
     Dosage: 394 MG, CYCLE 2
     Route: 042
  16. ACETAMINOPHEN [Concomitant]
     Indication: WOUND COMPLICATION
     Dosage: 3000 MG, UNK
     Route: 048
     Dates: start: 20110701
  17. ESOMEPRAZOLE [Concomitant]
     Indication: PROPHYLAXIS
     Dosage: 40 MG, UNK
     Route: 048
     Dates: start: 20110801, end: 20111002
  18. IDARUBICIN HCL [Suspect]
     Dosage: 23.6 MG, CYCLE 2
     Route: 042
  19. ZANTAC [Concomitant]
     Indication: PROPHYLAXIS
     Dosage: UNK
     Route: 065

REACTIONS (2)
  - PNEUMONIA FUNGAL [None]
  - FASCIITIS [None]
